FAERS Safety Report 5226167-3 (Version None)
Quarter: 2007Q1

REPORT INFORMATION
  Report Type: 
  Country: None (occurrence: None)
  Receive Date: 20070201
  Receipt Date: 20070122
  Transmission Date: 20070707
  Serious: Yes (Death)
  Sender: FDA-Public Use
  Company Number: JP-ROCHE-459818

PATIENT
  Age: 50 Year
  Sex: Male
  Weight: 69 kg

DRUGS (9)
  1. TAMIFLU [Suspect]
     Indication: INFLUENZA
     Route: 048
     Dates: start: 20060712, end: 20060712
  2. TAMIFLU [Suspect]
     Dosage: DOSE INCREASED.
     Route: 048
     Dates: start: 20060713, end: 20060716
  3. TAMIFLU [Suspect]
     Dosage: DOSE DECREASED.
     Route: 048
     Dates: start: 20060717, end: 20060717
  4. CALONAL [Concomitant]
     Dosage: THE GENERIC DRUG NAME WAS REPORTED AS ACETAMINOPHEN.
     Route: 048
     Dates: start: 20060712, end: 20060716
  5. NORVASC [Concomitant]
     Route: 048
     Dates: end: 20060806
  6. OLMETEC [Concomitant]
     Route: 048
     Dates: end: 20060806
  7. LIPITOR [Concomitant]
     Route: 048
     Dates: end: 20060803
  8. AMARYL [Concomitant]
     Route: 048
     Dates: start: 20050615, end: 20060802
  9. GASTER D [Concomitant]
     Route: 048
     Dates: end: 20060806

REACTIONS (1)
  - HEPATITIS FULMINANT [None]
